FAERS Safety Report 6151975-4 (Version None)
Quarter: 2009Q2

REPORT INFORMATION
  Report Type: 
  Country: None (occurrence: None)
  Receive Date: 20090410
  Receipt Date: 20090331
  Transmission Date: 20091009
  Serious: Yes (Death)
  Sender: FDA-Public Use
  Company Number: GB-JNJFOC-20090400409

PATIENT
  Age: 68 Year
  Sex: Male
  Weight: 90 kg

DRUGS (12)
  1. PARACETAMOL [Suspect]
  2. PARACETAMOL [Suspect]
     Indication: DRUG USE FOR UNKNOWN INDICATION
  3. PAROXETINE HCL [Suspect]
     Indication: DRUG USE FOR UNKNOWN INDICATION
  4. CODEINE SUL TAB [Suspect]
     Indication: DRUG USE FOR UNKNOWN INDICATION
  5. CANDESARTAN [Concomitant]
  6. CETIRIZINE [Concomitant]
     Route: 048
  7. DIAZEPAM [Concomitant]
     Route: 048
  8. MOMETASONE FUROATE [Concomitant]
     Route: 045
  9. OMEPRAZOLE [Concomitant]
     Route: 048
  10. SIMVASTATIN [Concomitant]
  11. VENLAFAXINE HCL [Concomitant]
  12. ZOPICLONE [Concomitant]

REACTIONS (3)
  - DEATH [None]
  - OVERDOSE [None]
  - THROMBOCYTOPENIA [None]
